FAERS Safety Report 6619693-3 (Version None)
Quarter: 2010Q1

REPORT INFORMATION
  Report Type: 
  Country: None (occurrence: None)
  Receive Date: 20100303
  Receipt Date: 20100222
  Transmission Date: 20100710
  Serious: Yes (Other)
  Sender: FDA-Public Use
  Company Number: TRP_06635_2009

PATIENT
  Sex: Female

DRUGS (2)
  1. RIBAPAK          (NOT SPECIFIED) [Suspect]
     Indication: HEPATITIS C
     Dosage: (800 MG, DAILY ORAL)
     Route: 048
     Dates: start: 20091117
  2. PEGASYS [Suspect]
     Indication: HEPATITIS C
     Dosage: (180 UG 1X/WEEK)
     Dates: start: 20081117

REACTIONS (15)
  - ABDOMINAL PAIN [None]
  - ARTHRALGIA [None]
  - ASTHENIA [None]
  - BLISTER [None]
  - CATARACT [None]
  - CHILLS [None]
  - DIARRHOEA [None]
  - DRUG DOSE OMISSION [None]
  - FATIGUE [None]
  - FEELING ABNORMAL [None]
  - HEADACHE [None]
  - HERPES ZOSTER [None]
  - HERPES ZOSTER OPHTHALMIC [None]
  - MYALGIA [None]
  - PYREXIA [None]
